FAERS Safety Report 9432561 (Version 1)
Quarter: 2013Q3

REPORT INFORMATION
  Report Type: Spontaneous
  Country: US (occurrence: US)
  Receive Date: 20130731
  Receipt Date: 20130731
  Transmission Date: 20140515
  Serious: No
  Sender: FDA-Public Use
  Company Number: US-GLAXOSMITHKLINE-A1000121A

PATIENT
  Age: 77 Year
  Sex: Female

DRUGS (9)
  1. DYAZIDE [Suspect]
     Indication: POLYURIA
     Dosage: 1CAP PER DAY
     Route: 048
     Dates: start: 1974
  2. HYDROCHLOROTHIAZIDE\TRIAMTERENE [Suspect]
     Indication: POLYURIA
     Dosage: 1CAP PER DAY
     Route: 048
     Dates: start: 201205, end: 201207
  3. AVAPRO [Concomitant]
  4. SYNTHROID [Concomitant]
  5. LANTUS [Concomitant]
  6. HUMALOG [Concomitant]
  7. HYDROCODONE [Concomitant]
  8. FAMOTIDINE [Concomitant]
  9. ZOLPIDEM TARTRATE [Concomitant]

REACTIONS (7)
  - Nausea [Unknown]
  - Eating disorder [Unknown]
  - Abdominal pain upper [Unknown]
  - Frequent bowel movements [Unknown]
  - Dizziness [Unknown]
  - Adverse drug reaction [Unknown]
  - Condition aggravated [Unknown]
